FAERS Safety Report 19548459 (Version 1)
Quarter: 2021Q3

REPORT INFORMATION
  Report Type: Other
  Country: US (occurrence: US)
  Receive Date: 20210715
  Receipt Date: 20210715
  Transmission Date: 20211014
  Serious: Yes (Hospitalization)
  Sender: FDA-Public Use
  Company Number: US-ETHYPHARM-2021001086

PATIENT
  Age: 49 Year
  Sex: Male

DRUGS (2)
  1. BUPRENORPHINE. [Suspect]
     Active Substance: BUPRENORPHINE
     Route: 045
  2. HEROIN [Suspect]
     Active Substance: DIAMORPHINE
     Dosage: INSUFFLATED SIX BAGS OF HEROIN
     Route: 045

REACTIONS (4)
  - Drug abuse [Recovered/Resolved]
  - Cardiomyopathy [Recovered/Resolved]
  - Drug withdrawal syndrome [Recovered/Resolved]
  - Incorrect route of product administration [Recovered/Resolved]
